FAERS Safety Report 7733168-X (Version None)
Quarter: 2011Q3

REPORT INFORMATION
  Report Type: 
  Country: None (occurrence: None)
  Receive Date: 20110901
  Receipt Date: 20110708
  Transmission Date: 20111222
  Serious: No
  Sender: FDA-Public Use
  Company Number: KV201100109

PATIENT
  Age: 32 Year
  Sex: Female

DRUGS (2)
  1. MAKENA [Suspect]
     Indication: PREMATURE DELIVERY
     Dosage: 250 MG, ONCE WEEKLY, INTRAMUSCULAR
     Route: 030
     Dates: start: 20110601
  2. PRENATAL VITAMINS  /01549301/ ASCORBIC ACID, BIOTIN, MINERAL NOS, NICO [Concomitant]

REACTIONS (6)
  - CONTUSION [None]
  - URTICARIA [None]
  - INJECTION SITE PAIN [None]
  - PRURITUS [None]
  - INJECTION SITE PRURITUS [None]
  - RASH [None]
